FAERS Safety Report 6575488-0 (Version None)
Quarter: 2010Q1

REPORT INFORMATION
  Report Type: 
  Country: None (occurrence: None)
  Receive Date: 20100209
  Receipt Date: 20100128
  Transmission Date: 20100710
  Serious: Yes (Other)
  Sender: FDA-Public Use
  Company Number: JP-PFIZER INC-2010012576

PATIENT

DRUGS (1)
  1. LINEZOLID [Suspect]
     Dosage: 2 WEEKS

REACTIONS (1)
  - BONE MARROW FAILURE [None]
